FAERS Safety Report 5625329-0 (Version None)
Quarter: 2008Q1

REPORT INFORMATION
  Report Type: 
  Country: None (occurrence: None)
  Receive Date: 20080211
  Receipt Date: 20080201
  Transmission Date: 20080703
  Serious: Yes (Other)
  Sender: FDA-Public Use
  Company Number: 163-21880-07041092

PATIENT
  Age: 47 Year
  Sex: Female

DRUGS (5)
  1. REVLIMID [Suspect]
     Indication: MULTIPLE MYELOMA
     Dosage: 10 MG, 1 IN 1 D, ORAL; 15 MG,1 IN 1 D, ORAL; 12.5 MG, 1 IN 2 D, ORAL; 25 MG, 1 IN 1 D, ORAL; ORAL
     Route: 048
     Dates: start: 20061222, end: 20070301
  2. REVLIMID [Suspect]
     Indication: MULTIPLE MYELOMA
     Dosage: 10 MG, 1 IN 1 D, ORAL; 15 MG,1 IN 1 D, ORAL; 12.5 MG, 1 IN 2 D, ORAL; 25 MG, 1 IN 1 D, ORAL; ORAL
     Route: 048
     Dates: start: 20070508, end: 20070601
  3. REVLIMID [Suspect]
     Indication: MULTIPLE MYELOMA
     Dosage: 10 MG, 1 IN 1 D, ORAL; 15 MG,1 IN 1 D, ORAL; 12.5 MG, 1 IN 2 D, ORAL; 25 MG, 1 IN 1 D, ORAL; ORAL
     Route: 048
     Dates: start: 20070315
  4. REVLIMID [Suspect]
     Indication: MULTIPLE MYELOMA
     Dosage: 10 MG, 1 IN 1 D, ORAL; 15 MG,1 IN 1 D, ORAL; 12.5 MG, 1 IN 2 D, ORAL; 25 MG, 1 IN 1 D, ORAL; ORAL
     Route: 048
     Dates: start: 20071011
  5. REVLIMID [Suspect]
     Indication: MULTIPLE MYELOMA
     Dosage: 10 MG, 1 IN 1 D, ORAL; 15 MG,1 IN 1 D, ORAL; 12.5 MG, 1 IN 2 D, ORAL; 25 MG, 1 IN 1 D, ORAL; ORAL
     Route: 048
     Dates: start: 20071201

REACTIONS (1)
  - BLOOD HUMAN CHORIONIC GONADOTROPIN INCREASED [None]
